FAERS Safety Report 13930734 (Version 2)
Quarter: 2017Q4

REPORT INFORMATION
  Report Type: Report from Study
  Country: DZ (occurrence: DZ)
  Receive Date: 20170901
  Receipt Date: 20171005
  Transmission Date: 20180320
  Serious: Yes (Hospitalization)
  Sender: FDA-Public Use
  Company Number: DZ-ACTELION-A-US2017-158945

PATIENT
  Age: 67 Year
  Sex: Female

DRUGS (1)
  1. VENTAVIS [Suspect]
     Active Substance: ILOPROST
     Indication: PULMONARY ARTERIAL HYPERTENSION
     Dosage: 2.5 MCG, TID
     Route: 055
     Dates: start: 201707

REACTIONS (6)
  - Erythema [Recovering/Resolving]
  - Lip discolouration [Recovering/Resolving]
  - Respiratory distress [Recovering/Resolving]
  - Inappropriate schedule of drug administration [Unknown]
  - Cough [Recovering/Resolving]
  - Headache [Recovering/Resolving]

NARRATIVE: CASE EVENT DATE: 201707
